FAERS Safety Report 9477829 (Version 1)
Quarter: 2013Q3

REPORT INFORMATION
  Report Type: Spontaneous
  Country: US (occurrence: None)
  Receive Date: 20130826
  Receipt Date: 20130826
  Transmission Date: 20140515
  Serious: No
  Sender: FDA-Public Use
  Company Number: None

PATIENT
  Age: 36 Year
  Sex: Male
  Weight: 72.58 kg

DRUGS (2)
  1. LEVAQUIN [Suspect]
     Indication: PROSTATITIS
     Dosage: 1 PILL
     Route: 048
  2. CIPRO [Suspect]
     Indication: PROSTATITIS
     Dosage: 1 PILL TWIE DAILY TAKEN BY MOUTH
     Route: 048

REACTIONS (6)
  - Skin exfoliation [None]
  - Insomnia [None]
  - Myalgia [None]
  - Musculoskeletal stiffness [None]
  - Hypoaesthesia [None]
  - Temporomandibular joint syndrome [None]
